FAERS Safety Report 21210580 (Version 2)
Quarter: 2022Q3

REPORT INFORMATION
  Report Type: Spontaneous
  Country: US (occurrence: US)
  Receive Date: 20220815
  Receipt Date: 20220824
  Transmission Date: 20221027
  Serious: Yes (Hospitalization, Other)
  Sender: FDA-Public Use
  Company Number: US-BEH-2022148382

PATIENT
  Age: 67 Year
  Sex: Male
  Weight: 99.773 kg

DRUGS (3)
  1. HIZENTRA [Suspect]
     Active Substance: HUMAN IMMUNOGLOBULIN G
     Indication: Stiff person syndrome
     Dosage: 24 GRAM, QW
     Route: 058
     Dates: start: 202207
  2. HIZENTRA [Suspect]
     Active Substance: HUMAN IMMUNOGLOBULIN G
     Indication: Chronic inflammatory demyelinating polyradiculoneuropathy
     Dosage: 1 GRAM, QW
     Route: 058
     Dates: start: 202207
  3. HIZENTRA [Suspect]
     Active Substance: HUMAN IMMUNOGLOBULIN G
     Dosage: 25 GRAM, BIW
     Route: 058
     Dates: start: 20220718

REACTIONS (6)
  - Localised infection [Not Recovered/Not Resolved]
  - Gangrene [Not Recovered/Not Resolved]
  - Therapy interrupted [Not Recovered/Not Resolved]
  - No adverse event [Unknown]
  - Off label use [Unknown]
  - Feeling abnormal [Unknown]

NARRATIVE: CASE EVENT DATE: 20220801
